FAERS Safety Report 7025734-4 (Version None)
Quarter: 2010Q4

REPORT INFORMATION
  Report Type: 
  Country: None (occurrence: None)
  Receive Date: 20101004
  Receipt Date: 20100924
  Transmission Date: 20110411
  Serious: Yes (Other)
  Sender: FDA-Public Use
  Company Number: US-BIOGENIDEC-2010BI033328

PATIENT
  Age: 73 Year
  Sex: Male

DRUGS (1)
  1. TYSABRI [Suspect]
     Indication: MULTIPLE SCLEROSIS
     Route: 042
     Dates: start: 20080806

REACTIONS (11)
  - ASTHENIA [None]
  - COORDINATION ABNORMAL [None]
  - CROHN'S DISEASE [None]
  - DRUG INEFFECTIVE [None]
  - DYSSTASIA [None]
  - MOBILITY DECREASED [None]
  - MUSCLE DISORDER [None]
  - MUSCLE SPASMS [None]
  - OPTIC NERVE DISORDER [None]
  - SKIN FRAGILITY [None]
  - THROMBOSIS [None]
